FAERS Safety Report 8571869-4 (Version None)
Quarter: 2012Q3

REPORT INFORMATION
  Report Type: 
  Country: None (occurrence: None)
  Receive Date: 20120806
  Receipt Date: 20120731
  Transmission Date: 20120928
  Serious: No
  Sender: FDA-Public Use
  Company Number: US-PFIZER INC-2012185809

PATIENT
  Sex: Female

DRUGS (2)
  1. EFFEXOR XR [Suspect]
  2. PRISTIQ [Suspect]

REACTIONS (2)
  - INSOMNIA [None]
  - HEADACHE [None]
